FAERS Safety Report 10770299 (Version 6)
Quarter: 2019Q1

REPORT INFORMATION
  Report Type: Report from Study
  Country: JP (occurrence: JP)
  Receive Date: 20150206
  Receipt Date: 20190116
  Transmission Date: 20190417
  Serious: Yes (Other)
  Sender: FDA-Public Use
  Company Number: JP-ASTELLAS-2015JP002034

PATIENT
  Age: 71 Year
  Sex: Male

DRUGS (4)
  1. LEUPLIN [Concomitant]
     Active Substance: LEUPROLIDE ACETATE
     Indication: PROSTATE CANCER
     Dosage: 11.25 MG, EVERY 12 WEEKS
     Route: 058
     Dates: start: 20131112, end: 20141016
  2. ODYNE [Concomitant]
     Active Substance: FLUTAMIDE
     Indication: PROSTATE CANCER
     Route: 048
     Dates: start: 20141016, end: 20141119
  3. ALFAROL [Concomitant]
     Active Substance: ALFACALCIDOL
     Indication: BONE DENSITY DECREASED
     Dosage: 0.5 ?G, ONCE DAILY
     Route: 048
     Dates: start: 20050121, end: 20141016
  4. ENZALUTAMIDE [Suspect]
     Active Substance: ENZALUTAMIDE
     Indication: PROSTATE CANCER
     Route: 048
     Dates: start: 20141120, end: 20141129

REACTIONS (4)
  - Diarrhoea [Recovering/Resolving]
  - Nasopharyngitis [Recovered/Resolved]
  - Myalgia [Recovering/Resolving]
  - Fatigue [Recovering/Resolving]

NARRATIVE: CASE EVENT DATE: 20141129
